FAERS Safety Report 17221868 (Version 6)
Quarter: 2022Q3

REPORT INFORMATION
  Report Type: Spontaneous
  Country: US (occurrence: None)
  Receive Date: 20200101
  Receipt Date: 20220727
  Transmission Date: 20221026
  Serious: Yes (Other)
  Sender: FDA-Public Use
  Company Number: 2019SF91675

PATIENT
  Sex: Female
  Weight: 89.5 kg

DRUGS (87)
  1. PRILOSEC [Suspect]
     Active Substance: OMEPRAZOLE MAGNESIUM
     Indication: Gastrooesophageal reflux disease
     Route: 048
     Dates: start: 2000, end: 2016
  2. PRILOSEC [Suspect]
     Active Substance: OMEPRAZOLE MAGNESIUM
     Indication: Gastrooesophageal reflux disease
     Dosage: GENERIC
     Route: 065
     Dates: start: 2000, end: 2016
  3. PRILOSEC [Suspect]
     Active Substance: OMEPRAZOLE MAGNESIUM
     Indication: Gastrooesophageal reflux disease
     Dosage: GENERIC
     Route: 065
  4. PRILOSEC [Suspect]
     Active Substance: OMEPRAZOLE MAGNESIUM
     Indication: Gastrooesophageal reflux disease
     Route: 048
     Dates: start: 20090804
  5. PRILOSEC [Suspect]
     Active Substance: OMEPRAZOLE MAGNESIUM
     Indication: Gastrooesophageal reflux disease
     Dosage: GENERIC
     Route: 048
     Dates: start: 20070511
  6. PRILOSEC [Suspect]
     Active Substance: OMEPRAZOLE MAGNESIUM
     Indication: Gastrooesophageal reflux disease
     Dosage: GENERIC
     Route: 065
     Dates: start: 20031215
  7. PRILOSEC [Suspect]
     Active Substance: OMEPRAZOLE MAGNESIUM
     Indication: Gastrooesophageal reflux disease
     Dosage: GENERIC20.0MG UNKNOWN
     Route: 065
     Dates: start: 2007, end: 2021
  8. PRILOSEC [Suspect]
     Active Substance: OMEPRAZOLE MAGNESIUM
     Indication: Gastrooesophageal reflux disease
     Dosage: GENERIC20.0MG UNKNOWN
     Route: 048
     Dates: start: 2003, end: 2010
  9. PRILOSEC OTC [Suspect]
     Active Substance: OMEPRAZOLE MAGNESIUM
     Indication: Gastrooesophageal reflux disease
     Route: 048
     Dates: start: 2000, end: 2016
  10. PRILOSEC OTC [Suspect]
     Active Substance: OMEPRAZOLE MAGNESIUM
     Indication: Gastrooesophageal reflux disease
     Route: 048
     Dates: start: 2008, end: 2010
  11. PRILOSEC OTC [Suspect]
     Active Substance: OMEPRAZOLE MAGNESIUM
     Indication: Gastrooesophageal reflux disease
     Route: 048
     Dates: start: 20080505
  12. PRILOSEC OTC [Suspect]
     Active Substance: OMEPRAZOLE MAGNESIUM
     Indication: Gastrooesophageal reflux disease
     Route: 048
     Dates: start: 20031120
  13. PRILOSEC OTC [Suspect]
     Active Substance: OMEPRAZOLE MAGNESIUM
     Indication: Gastrooesophageal reflux disease
     Dosage: 20.0MG UNKNOWN
     Route: 048
     Dates: start: 2003, end: 2010
  14. PREVACID [Suspect]
     Active Substance: LANSOPRAZOLE
     Indication: Gastrooesophageal reflux disease
     Dosage: 20.0MG UNKNOWN
     Route: 065
     Dates: start: 2004, end: 2005
  15. PANTOPRAZOLE [Suspect]
     Active Substance: PANTOPRAZOLE
     Indication: Gastrooesophageal reflux disease
     Dosage: 20.0MG UNKNOWN
     Route: 065
     Dates: start: 2020, end: 2021
  16. OMEPRAZOLE\SODIUM BICARBONATE [Suspect]
     Active Substance: OMEPRAZOLE\SODIUM BICARBONATE
     Indication: Gastrooesophageal reflux disease
     Dosage: 40.0MG UNKNOWN
     Route: 065
     Dates: start: 2015, end: 2016
  17. CRESTOR [Concomitant]
     Active Substance: ROSUVASTATIN CALCIUM
     Dates: start: 2007, end: 2010
  18. TRAMADOL [Concomitant]
     Active Substance: TRAMADOL
     Dates: start: 2007, end: 2010
  19. LISINOPRIL [Concomitant]
     Active Substance: LISINOPRIL
     Dates: start: 2009
  20. AMOXICILLIN [Concomitant]
     Active Substance: AMOXICILLIN
  21. BYETTA [Concomitant]
     Active Substance: EXENATIDE
  22. RANITIDINE [Concomitant]
     Active Substance: RANITIDINE
  23. METOPROLOL [Concomitant]
     Active Substance: METOPROLOL
  24. SINGULAIR [Concomitant]
     Active Substance: MONTELUKAST SODIUM
  25. METFORMIN [Concomitant]
     Active Substance: METFORMIN HYDROCHLORIDE
  26. LEVOTHYROXINE [Concomitant]
     Active Substance: LEVOTHYROXINE
     Indication: Thyroid disorder
     Dates: start: 1998
  27. ASPIRIN [Concomitant]
     Active Substance: ASPIRIN
  28. PHENAZOPYRIDINE [Concomitant]
     Active Substance: PHENAZOPYRIDINE
  29. DICYCLOMINE [Concomitant]
     Active Substance: DICYCLOMINE HYDROCHLORIDE
  30. ACTOS [Concomitant]
     Active Substance: PIOGLITAZONE HYDROCHLORIDE
  31. FLUCONAZOLE [Concomitant]
     Active Substance: FLUCONAZOLE
  32. DIAZEPAM [Concomitant]
     Active Substance: DIAZEPAM
  33. CYMBALTA [Concomitant]
     Active Substance: DULOXETINE HYDROCHLORIDE
  34. LIDODERM [Concomitant]
     Active Substance: LIDOCAINE
  35. LEVAQUIN [Concomitant]
     Active Substance: LEVOFLOXACIN
  36. METRONIDAZOLE [Concomitant]
     Active Substance: METRONIDAZOLE
  37. SKELAXIN [Concomitant]
     Active Substance: METAXALONE
  38. AZITHROMYCIN [Concomitant]
     Active Substance: AZITHROMYCIN
  39. KETOCONAZOLE [Concomitant]
     Active Substance: KETOCONAZOLE
  40. ENDOCET [Concomitant]
     Active Substance: ACETAMINOPHEN\OXYCODONE HYDROCHLORIDE
  41. ENOXAPARIN [Concomitant]
     Active Substance: ENOXAPARIN
  42. TAMIFLU [Concomitant]
     Active Substance: OSELTAMIVIR PHOSPHATE
  43. NYSTATIN [Concomitant]
     Active Substance: NYSTATIN
  44. CYCLOBENZAPRINE [Concomitant]
     Active Substance: CYCLOBENZAPRINE
  45. ZOLOFT [Concomitant]
     Active Substance: SERTRALINE HYDROCHLORIDE
     Dates: start: 2015
  46. PROVENTIL [Concomitant]
     Active Substance: ALBUTEROL
  47. LYRICA [Concomitant]
     Active Substance: PREGABALIN
  48. HYOSCYAMINE [Concomitant]
     Active Substance: HYOSCYAMINE
  49. PREMARIN [Concomitant]
     Active Substance: ESTROGENS, CONJUGATED
  50. DETROL [Concomitant]
     Active Substance: TOLTERODINE TARTRATE
  51. ZOLPIDEM [Concomitant]
     Active Substance: ZOLPIDEM TARTRATE
  52. CYANOCOBALA [Concomitant]
  53. GUAIFENESIN [Concomitant]
     Active Substance: GUAIFENESIN
  54. TRAZODONE HYDROCHLORIDE [Concomitant]
     Active Substance: TRAZODONE HYDROCHLORIDE
     Dates: start: 20030321
  55. LORCET [Concomitant]
     Active Substance: ACETAMINOPHEN\HYDROCODONE BITARTRATE
  56. HYDROCODONE [Concomitant]
     Active Substance: HYDROCODONE
  57. IPRATROPIUM [Concomitant]
     Active Substance: IPRATROPIUM
  58. ADVAIR HFA [Concomitant]
     Active Substance: FLUTICASONE PROPIONATE\SALMETEROL XINAFOATE
     Dates: start: 2009
  59. KRO NICOTINE [Concomitant]
     Dates: start: 2009
  60. CEFDINIR [Concomitant]
     Active Substance: CEFDINIR
     Dates: start: 2009
  61. LINZESS [Concomitant]
     Active Substance: LINACLOTIDE
     Indication: Colon injury
     Dates: start: 2019
  62. LANTUS [Concomitant]
     Active Substance: INSULIN GLARGINE
     Indication: Blood glucose abnormal
     Dates: start: 2018
  63. MEVACOR [Concomitant]
     Active Substance: LOVASTATIN
     Indication: Blood cholesterol
     Dates: start: 2019
  64. AMITRIPTYLINE [Concomitant]
     Active Substance: AMITRIPTYLINE
     Indication: Sleep disorder
     Dates: start: 2016
  65. BREZTRI [Concomitant]
     Active Substance: BUDESONIDE\FORMOTEROL\GLYCOPYRROLATE
     Dates: start: 2015
  66. OXYMETAZOLINE/ZINC [Concomitant]
  67. ZOFRAN [Concomitant]
     Active Substance: ONDANSETRON HYDROCHLORIDE
     Indication: Nerve injury
     Dates: start: 20131121
  68. SYNTHROID [Concomitant]
     Active Substance: LEVOTHYROXINE SODIUM
  69. FLEXERIL [Concomitant]
     Active Substance: CYCLOBENZAPRINE HYDROCHLORIDE
  70. TIZANIDINE [Concomitant]
     Active Substance: TIZANIDINE
  71. HYDRALAZINE [Concomitant]
     Active Substance: HYDRALAZINE HYDROCHLORIDE
  72. AMITRIPTYLINE [Concomitant]
     Active Substance: AMITRIPTYLINE
  73. BENTYL [Concomitant]
     Active Substance: DICYCLOMINE HYDROCHLORIDE
  74. NORVASC [Concomitant]
     Active Substance: AMLODIPINE BESYLATE
  75. CELEXA [Concomitant]
     Active Substance: CITALOPRAM HYDROBROMIDE
  76. ATROVENT [Concomitant]
     Active Substance: IPRATROPIUM BROMIDE
  77. LORTAB [Concomitant]
     Active Substance: ACETAMINOPHEN\HYDROCODONE BITARTRATE
  78. ZANAFLEX [Concomitant]
     Active Substance: TIZANIDINE HYDROCHLORIDE
  79. ALBUTEROL [Concomitant]
     Active Substance: ALBUTEROL
  80. MONTELUKAST [Concomitant]
     Active Substance: MONTELUKAST SODIUM
  81. DICLOFENAC [Concomitant]
     Active Substance: DICLOFENAC
  82. MECLIZINE [Concomitant]
     Active Substance: MECLIZINE HYDROCHLORIDE
  83. LINOCLOTIDE [Concomitant]
  84. ROSUVASTATIN [Concomitant]
     Active Substance: ROSUVASTATIN
  85. BENZONATATE [Concomitant]
     Active Substance: BENZONATATE
  86. LEXAPRO [Concomitant]
     Active Substance: ESCITALOPRAM OXALATE
  87. REMERON [Concomitant]
     Active Substance: MIRTAZAPINE

REACTIONS (2)
  - Chronic kidney disease [Not Recovered/Not Resolved]
  - Renal failure [Unknown]
